FAERS Safety Report 7544558-2 (Version None)
Quarter: 2011Q2

REPORT INFORMATION
  Report Type: 
  Country: None (occurrence: None)
  Receive Date: 20110613
  Receipt Date: 20110607
  Transmission Date: 20111010
  Serious: Yes (Hospitalization, Other)
  Sender: FDA-Public Use
  Company Number: US-CELGENEUS-CA040-07-0837

PATIENT
  Sex: Female
  Weight: 70.5 kg

DRUGS (18)
  1. TYLENOL-500 [Concomitant]
     Indication: HEADACHE
     Dosage: 325 MILLIGRAM
     Route: 048
  2. ASPIRIN [Concomitant]
     Indication: ROUTINE HEALTH MAINTENANCE
     Dosage: 1 TABLET
     Route: 048
     Dates: start: 20020101
  3. CALCIUM CARBONATE [Concomitant]
     Indication: ROUTINE HEALTH MAINTENANCE
     Dosage: 2 TABLET
     Route: 048
     Dates: start: 19870101
  4. K DUR [Concomitant]
     Dosage: 20 MILLIEQUIVALENTS
     Route: 048
     Dates: start: 20070817
  5. LIPODERM PATCH [Concomitant]
     Indication: OSTEOPOROSIS
     Dosage: 51 UNKNOWN
     Route: 062
     Dates: start: 20020101
  6. TOPROL-XL [Concomitant]
     Indication: HYPERTENSION
     Dosage: 100 MILLIGRAM
     Route: 048
     Dates: start: 20020101
  7. GARLIC [Concomitant]
     Indication: ROUTINE HEALTH MAINTENANCE
     Dosage: 1 TABLET
     Route: 048
     Dates: start: 19870101
  8. NSS [Concomitant]
     Dosage: 1 LITERS
     Route: 051
     Dates: start: 20070912, end: 20070912
  9. ABRAXANE [Suspect]
     Dosage: 172 MILLIGRAM
     Route: 065
     Dates: start: 20070815, end: 20071016
  10. LOVASTATIN [Concomitant]
     Dosage: 80 MILLIGRAM
     Route: 048
     Dates: start: 20020101
  11. NEXIUM [Concomitant]
     Route: 048
     Dates: start: 20020101
  12. WOBENZYM [Concomitant]
     Indication: ROUTINE HEALTH MAINTENANCE
     Dosage: 1 TABLET
     Route: 048
     Dates: start: 20010101
  13. NSS [Concomitant]
     Dosage: 1 LITERS
     Route: 051
     Dates: start: 20070919, end: 20070919
  14. GEMCITABINE [Suspect]
     Dosage: 1720 MILLIGRAM
     Route: 065
     Dates: start: 20070815, end: 20071016
  15. VITAMIN D [Concomitant]
     Indication: ROUTINE HEALTH MAINTENANCE
     Dosage: 1 TABLET
     Route: 048
     Dates: start: 19870101
  16. ACTONEL [Concomitant]
     Indication: OSTEOPOROSIS
     Dosage: 35 MILLIGRAM
     Route: 048
     Dates: start: 20020101
  17. PRBC [Concomitant]
     Dosage: 2 IU (INTERNATIONAL UNIT)
     Route: 051
     Dates: start: 20070913, end: 20070913
  18. HYDROCORTISONE [Concomitant]
     Indication: RASH
     Dosage: 1 PERCENT
     Route: 061
     Dates: start: 20070920

REACTIONS (2)
  - DIARRHOEA [None]
  - NEUTROPENIC SEPSIS [None]
